FAERS Safety Report 6100913-9 (Version None)
Quarter: 2009Q1

REPORT INFORMATION
  Report Type: 
  Country: None (occurrence: None)
  Receive Date: 20090304
  Receipt Date: 20090227
  Transmission Date: 20090719
  Serious: Yes (Life-Threatening, Hospitalization)
  Sender: FDA-Public Use
  Company Number: US-JNJFOC-20090300226

PATIENT
  Age: 30 Year
  Sex: Male

DRUGS (3)
  1. INVEGA [Suspect]
     Indication: DRUG USE FOR UNKNOWN INDICATION
     Route: 048
  2. CYMBALTA [Concomitant]
     Indication: DRUG USE FOR UNKNOWN INDICATION
  3. NARCOTICS [Concomitant]
     Indication: PAIN

REACTIONS (4)
  - DYSPNOEA [None]
  - DYSTONIA [None]
  - OESOPHAGEAL DISORDER [None]
  - SWOLLEN TONGUE [None]
